FAERS Safety Report 14147640 (Version 1)
Quarter: 2017Q4

REPORT INFORMATION
  Report Type: Spontaneous
  Country: US (occurrence: US)
  Receive Date: 20171031
  Receipt Date: 20171031
  Transmission Date: 20180321
  Serious: No
  Sender: FDA-Public Use
  Company Number: US-ROMARKLABS-2017-US-000041

PATIENT
  Age: 9 Year
  Sex: Male
  Weight: 38.1 kg

DRUGS (3)
  1. ALINIA [Suspect]
     Active Substance: NITAZOXANIDE
     Indication: DYSBACTERIOSIS
     Dosage: 1 TAB EVERY 12 HOURS
     Route: 048
     Dates: start: 20170418, end: 20170419
  2. MIRALAX [Concomitant]
     Active Substance: POLYETHYLENE GLYCOL 3350
     Indication: GASTROINTESTINAL DISORDER
     Dosage: 1 CAP EVERY MORNING
     Route: 048
  3. CULTURELLE PROBIOTICS [Concomitant]
     Indication: GASTROINTESTINAL DISORDER
     Dosage: 1 DOSE AT NIGHT
     Route: 048

REACTIONS (2)
  - Dysuria [Unknown]
  - Chromaturia [Unknown]

NARRATIVE: CASE EVENT DATE: 20170418
